FAERS Safety Report 9749052 (Version 2)
Quarter: 2014Q1

REPORT INFORMATION
  Report Type: Spontaneous
  Country: US (occurrence: US)
  Receive Date: 20131212
  Receipt Date: 20140312
  Transmission Date: 20141002
  Serious: No
  Sender: FDA-Public Use
  Company Number: US-INCYTE CORPORATION-2013IN002300

PATIENT
  Sex: Male

DRUGS (6)
  1. JAKAFI [Suspect]
     Indication: POLYCYTHAEMIA VERA
     Dosage: 5 MG, BID
     Route: 048
  2. JAKAFI [Suspect]
     Indication: MYELOFIBROSIS
     Dosage: 15 MG, BID
     Route: 048
     Dates: start: 20131125
  3. NEXIUM                             /01479302/ [Concomitant]
     Dosage: 20 MG CAPSULE, UNK
  4. ALLOPURINOL [Concomitant]
     Dosage: 100 MG TABLET, UNK
  5. ASPIRIN (E.C.) [Concomitant]
     Dosage: 81 MG, TAB UNK
  6. OMEGA 3 FISH OILS [Concomitant]

REACTIONS (4)
  - Epistaxis [Unknown]
  - Nausea [Unknown]
  - Vomiting [Unknown]
  - Weight increased [Unknown]
